FAERS Safety Report 5801169-4 (Version None)
Quarter: 2008Q3

REPORT INFORMATION
  Report Type: 
  Country: None (occurrence: None)
  Receive Date: 20080707
  Receipt Date: 20080623
  Transmission Date: 20090109
  Serious: Yes (Disabling)
  Sender: FDA-Public Use
  Company Number: US-ELI_LILLY_AND_COMPANY-US200806005245

PATIENT
  Age: 76 Year
  Sex: Female

DRUGS (2)
  1. ZYPREXA [Suspect]
     Indication: ANXIETY
     Dosage: 2.5 MG, DAILY (1/D)
     Dates: start: 20040101
  2. XANAX [Concomitant]

REACTIONS (4)
  - GAIT DISTURBANCE [None]
  - NEUROPATHY PERIPHERAL [None]
  - PAIN [None]
  - PERIPHERAL COLDNESS [None]
